FAERS Safety Report 17412957 (Version 1)
Quarter: 2020Q1

REPORT INFORMATION
  Report Type: Spontaneous
  Country: US (occurrence: US)
  Receive Date: 20200212
  Receipt Date: 20200212
  Transmission Date: 20200409
  Serious: No
  Sender: FDA-Public Use
  Company Number: None

PATIENT
  Age: 51 Year
  Sex: Male

DRUGS (4)
  1. VALGANCICLOV TAB 450MG [Concomitant]
     Active Substance: VALGANCICLOVIR
     Dates: start: 20200211
  2. LAMIVUD/ZIDO TAB 150-300 [Concomitant]
     Active Substance: LAMIVUDINE\ZIDOVUDINE
     Dates: start: 20191226
  3. ISENTRESS [Suspect]
     Active Substance: RALTEGRAVIR POTASSIUM
     Indication: HIV INFECTION
     Route: 048
     Dates: start: 20200212
  4. QUETIAPINE TAB 25MG [Concomitant]
     Dates: start: 20200203

REACTIONS (2)
  - Coma [None]
  - Cardiac failure congestive [None]

NARRATIVE: CASE EVENT DATE: 20200211
